FAERS Safety Report 16038247 (Version 5)
Quarter: 2019Q2

REPORT INFORMATION
  Report Type: Spontaneous
  Country: US (occurrence: US)
  Receive Date: 20190305
  Receipt Date: 20190621
  Transmission Date: 20190711
  Serious: Yes (Death, Other)
  Sender: FDA-Public Use
  Company Number: US-ASTRAZENECA-2018SF26613

PATIENT
  Age: 623 Month
  Sex: Female

DRUGS (27)
  1. NEXIUM [Suspect]
     Active Substance: ESOMEPRAZOLE MAGNESIUM
     Route: 048
  2. PREVACID 24 HR [Suspect]
     Active Substance: LANSOPRAZOLE
     Route: 065
  3. GABAPENTIN. [Concomitant]
     Active Substance: GABAPENTIN
  4. SYNTHROID [Concomitant]
     Active Substance: LEVOTHYROXINE SODIUM
  5. MIRALAX [Concomitant]
     Active Substance: POLYETHYLENE GLYCOL 3350
  6. PRILOSEC [Suspect]
     Active Substance: OMEPRAZOLE MAGNESIUM
     Indication: GASTROOESOPHAGEAL REFLUX DISEASE
     Route: 048
     Dates: start: 200501, end: 201112
  7. ANASTROZOLE. [Concomitant]
     Active Substance: ANASTROZOLE
     Route: 065
  8. RENVELA [Concomitant]
     Active Substance: SEVELAMER CARBONATE
  9. PRILOSEC [Suspect]
     Active Substance: OMEPRAZOLE MAGNESIUM
     Indication: GASTROOESOPHAGEAL REFLUX DISEASE
     Route: 048
     Dates: start: 20050101, end: 20111231
  10. PLAVIX [Concomitant]
     Active Substance: CLOPIDOGREL BISULFATE
  11. PREVACID [Suspect]
     Active Substance: LANSOPRAZOLE
     Route: 065
  12. ASPIRIN. [Concomitant]
     Active Substance: ASPIRIN
  13. VITAMIN D3 [Concomitant]
     Active Substance: CHOLECALCIFEROL
  14. PRILOSEC OTC [Suspect]
     Active Substance: OMEPRAZOLE MAGNESIUM
     Indication: GASTROOESOPHAGEAL REFLUX DISEASE
     Route: 048
     Dates: start: 20050101, end: 20111231
  15. FLUTICASONE. [Concomitant]
     Active Substance: FLUTICASONE
  16. LEVAQUIN [Concomitant]
     Active Substance: LEVOFLOXACIN
  17. COLACE [Concomitant]
     Active Substance: DOCUSATE SODIUM
  18. PRILOSEC OTC [Suspect]
     Active Substance: OMEPRAZOLE MAGNESIUM
     Indication: GASTROOESOPHAGEAL REFLUX DISEASE
     Route: 048
     Dates: start: 200501, end: 201112
  19. ESTROVEN [Concomitant]
     Active Substance: DIETARY SUPPLEMENT
  20. FLUTICASONE. [Concomitant]
     Active Substance: FLUTICASONE
  21. VITAMIN D [Concomitant]
     Active Substance: VITAMIN D NOS
  22. ALLOPURINOL. [Concomitant]
     Active Substance: ALLOPURINOL
  23. SPIRIVA [Concomitant]
     Active Substance: TIOTROPIUM BROMIDE MONOHYDRATE
  24. TYLENOL [Concomitant]
     Active Substance: ACETAMINOPHEN
  25. NEXIUM 24HR [Suspect]
     Active Substance: ESOMEPRAZOLE MAGNESIUM
     Route: 048
  26. TRAMADOL. [Concomitant]
     Active Substance: TRAMADOL
  27. ATIVAN [Concomitant]
     Active Substance: LORAZEPAM

REACTIONS (6)
  - End stage renal disease [Fatal]
  - Acute kidney injury [Not Recovered/Not Resolved]
  - Chronic kidney disease [Not Recovered/Not Resolved]
  - Sudden cardiac death [Fatal]
  - Renal failure [Unknown]
  - Renal injury [Unknown]

NARRATIVE: CASE EVENT DATE: 201201
